FAERS Safety Report 8471502-6 (Version None)
Quarter: 2012Q2

REPORT INFORMATION
  Report Type: 
  Country: None (occurrence: None)
  Receive Date: 20120323
  Receipt Date: 20111129
  Transmission Date: 20120825
  Serious: Yes (Hospitalization)
  Sender: FDA-Public Use
  Company Number: 163-21880-11100371

PATIENT
  Age: 66 Year
  Sex: Female

DRUGS (6)
  1. PRILOSEC [Concomitant]
  2. PROAMATINE [Concomitant]
  3. VELCADE [Concomitant]
  4. VITAMIN TAB [Concomitant]
  5. REVLIMID [Suspect]
     Indication: MULTIPLE MYELOMA
     Dosage: 25 MG, DAILY X 21 D/OFF 1 WEEK, PO
     Route: 048
     Dates: start: 20110615
  6. NEURONTIN [Concomitant]

REACTIONS (3)
  - HYPOTENSION [None]
  - DEHYDRATION [None]
  - URINARY TRACT INFECTION [None]
